FAERS Safety Report 7026938-7 (Version None)
Quarter: 2010Q4

REPORT INFORMATION
  Report Type: 
  Country: None (occurrence: None)
  Receive Date: 20101004
  Receipt Date: 20100924
  Transmission Date: 20110411
  Serious: Yes (Hospitalization)
  Sender: FDA-Public Use
  Company Number: B0677289A

PATIENT
  Age: 4 Month
  Sex: Female

DRUGS (1)
  1. ZANTAC [Suspect]
     Indication: GASTROOESOPHAGEAL REFLUX DISEASE
     Dosage: 2ML PER DAY
     Route: 048
     Dates: start: 20100908, end: 20100908

REACTIONS (4)
  - CRYING [None]
  - PAIN [None]
  - RASH [None]
  - VOMITING [None]
